FAERS Safety Report 10172852 (Version 2)
Quarter: 2014Q2

REPORT INFORMATION
  Report Type: Spontaneous
  Country: US (occurrence: None)
  Receive Date: 20140513
  Receipt Date: 20140527
  Transmission Date: 20141212
  Serious: Yes (Other)
  Sender: FDA-Public Use
  Company Number: 2014-US-005205

PATIENT
  Age: 46 Year
  Sex: Female
  Weight: 93 kg

DRUGS (3)
  1. XYREM [Suspect]
     Indication: NARCOLEPSY
     Route: 048
  2. XYREM [Suspect]
     Indication: CATAPLEXY
     Route: 048
  3. ADDERALL [Suspect]

REACTIONS (5)
  - Toxicity to various agents [None]
  - Disturbance in attention [None]
  - Disturbance in attention [None]
  - Detoxification [None]
  - Incorrect dose administered [None]
